FAERS Safety Report 8920926 (Version 2)
Quarter: 2014Q2

REPORT INFORMATION
  Report Type: Spontaneous
  Country: US (occurrence: US)
  Receive Date: 20121122
  Receipt Date: 20131018
  Transmission Date: 20141212
  Serious: Yes (Other)
  Sender: FDA-Public Use
  Company Number: US-PFIZER INC-2012289942

PATIENT
  Age: 65 Year
  Sex: Female
  Weight: 132 kg

DRUGS (3)
  1. ADVIL [Suspect]
     Indication: PAIN
     Dosage: UNK
  2. ADVIL PM [Suspect]
     Indication: PAIN
     Dosage: UNK
     Route: 048
  3. ADVIL PM [Suspect]
     Indication: SLEEP DISORDER

REACTIONS (3)
  - Kidney infection [Unknown]
  - Drug ineffective [Unknown]
  - Insomnia [Unknown]
